FAERS Safety Report 7889453-4 (Version None)
Quarter: 2011Q4

REPORT INFORMATION
  Report Type: 
  Country: None (occurrence: None)
  Receive Date: 20111103
  Receipt Date: 20111011
  Transmission Date: 20120403
  Serious: Yes (Hospitalization)
  Sender: FDA-Public Use
  Company Number: PHHO2011GR18208

PATIENT
  Age: 55 Year
  Sex: Female

DRUGS (8)
  1. ATORVASTATIN [Suspect]
     Indication: RHEUMATOID ARTHRITIS
     Dosage: 40 MG, QD
     Dates: start: 20100726
  2. PAROXETINE HCL [Suspect]
     Indication: RHEUMATOID ARTHRITIS
     Dosage: 10 MG, QD
     Dates: start: 20060101
  3. HYDROCHLOROTHIAZIDE [Suspect]
     Indication: RHEUMATOID ARTHRITIS
     Dosage: 12.5 MG, QD
     Dates: start: 20110321
  4. AMLODIPINE [Suspect]
     Indication: RHEUMATOID ARTHRITIS
     Dosage: 15 MG, UNK
     Dates: start: 20110321
  5. TOCILIZUMAB [Suspect]
     Indication: RHEUMATOID ARTHRITIS
     Dosage: 584 MG, EVERY 28 DAYS
     Route: 042
     Dates: start: 20100202, end: 20110514
  6. ALPRAZOLAM [Suspect]
     Indication: RHEUMATOID ARTHRITIS
     Dosage: 0.25 MG, UNK
     Dates: start: 20060101
  7. METHOTREXATE [Suspect]
     Indication: RHEUMATOID ARTHRITIS
     Dosage: UNK
     Route: 048
     Dates: start: 20100202, end: 20110511
  8. VALSARTAN [Suspect]
     Indication: RHEUMATOID ARTHRITIS
     Dosage: 160 MG, QD
     Dates: start: 20110321

REACTIONS (1)
  - PLEURISY [None]
